FAERS Safety Report 7672295-2 (Version None)
Quarter: 2011Q3

REPORT INFORMATION
  Report Type: 
  Country: None (occurrence: None)
  Receive Date: 20110809
  Receipt Date: 20110729
  Transmission Date: 20111222
  Serious: Yes (Other)
  Sender: FDA-Public Use
  Company Number: PHHY2011US64723

PATIENT
  Sex: Female

DRUGS (5)
  1. GILENYA [Suspect]
     Indication: MULTIPLE SCLEROSIS
     Dosage: 0.5 MG, QD
     Route: 048
     Dates: start: 20110613, end: 20110717
  2. NORVASC [Concomitant]
     Dosage: 5 MG, QD
     Route: 048
     Dates: start: 20080101
  3. FLUOXETINE [Concomitant]
     Indication: MULTIPLE SCLEROSIS
     Dosage: 20 MG, QD
     Route: 048
     Dates: start: 20080101
  4. MECLIZINE [Concomitant]
     Dosage: 12.5 MG, PRN
     Route: 048
     Dates: start: 20080101
  5. BACLOFEN [Concomitant]
     Indication: MULTIPLE SCLEROSIS
     Dosage: 20 MG, 4 TABLETS
     Route: 048
     Dates: start: 20080101

REACTIONS (10)
  - NASOPHARYNGITIS [None]
  - FATIGUE [None]
  - BLEPHAROSPASM [None]
  - CHEST DISCOMFORT [None]
  - EYE DISCHARGE [None]
  - DIZZINESS [None]
  - DYSPNOEA [None]
  - COUGH [None]
  - PALPITATIONS [None]
  - UPPER RESPIRATORY TRACT INFECTION [None]
